FAERS Safety Report 8418955 (Version 3)
Quarter: 2013Q3

REPORT INFORMATION
  Report Type: Report from Study
  Country: AU (occurrence: AU)
  Receive Date: 20120221
  Receipt Date: 20130821
  Transmission Date: 20140515
  Serious: Yes (Other)
  Sender: FDA-Public Use
  Company Number: AU-ROCHE-1041223

PATIENT
  Age: 85 Year
  Sex: Female

DRUGS (3)
  1. LUCENTIS [Suspect]
     Indication: AGE-RELATED MACULAR DEGENERATION
     Route: 050
     Dates: start: 20100713
  2. LUCENTIS [Suspect]
     Route: 050
     Dates: start: 20100810
  3. LUCENTIS [Suspect]
     Route: 050
     Dates: start: 20100914

REACTIONS (10)
  - Fall [Unknown]
  - Rash generalised [Not Recovered/Not Resolved]
  - Blood glucose increased [Unknown]
  - Periorbital contusion [Recovering/Resolving]
  - Head injury [Recovering/Resolving]
  - Feeling abnormal [Not Recovered/Not Resolved]
  - Visual impairment [Not Recovered/Not Resolved]
  - Detachment of retinal pigment epithelium [Unknown]
  - Tenderness [Unknown]
  - Visual acuity reduced [Not Recovered/Not Resolved]
